FAERS Safety Report 6608065-3 (Version None)
Quarter: 2010Q1

REPORT INFORMATION
  Report Type: 
  Country: None (occurrence: None)
  Receive Date: 20100301
  Receipt Date: 20100222
  Transmission Date: 20100710
  Serious: Yes (Death)
  Sender: FDA-Public Use
  Company Number: CHPA2010US03835

PATIENT
  Age: 50 Year
  Sex: Female

DRUGS (4)
  1. LORATADINE (NCH) [Suspect]
     Route: 048
  2. METHADONE [Suspect]
     Route: 048
  3. MORPHINE [Suspect]
     Route: 048
  4. COCAINE [Suspect]
     Route: 048

REACTIONS (1)
  - DEATH [None]
